FAERS Safety Report 25390092 (Version 2)
Quarter: 2025Q3

REPORT INFORMATION
  Report Type: Report from Study
  Country: US (occurrence: US)
  Receive Date: 20250603
  Receipt Date: 20250708
  Transmission Date: 20251020
  Serious: Yes (Hospitalization)
  Sender: PFIZER
  Company Number: US-PFIZER INC-PV202500059410

PATIENT
  Age: 59 Year
  Sex: Female

DRUGS (3)
  1. BRAFTOVI [Suspect]
     Active Substance: ENCORAFENIB
     Indication: Colon cancer
     Dosage: 225 MG (75 MG CAPSULES TAKE 3 CAPSULES), 1X/DAY
     Route: 048
     Dates: start: 20250514, end: 20250529
  2. BRAFTOVI [Suspect]
     Active Substance: ENCORAFENIB
     Dosage: 150 MG (2-75 MG CAPSULES) ONCE DAILY BY MOUTH (CURRENT DOSE)
     Route: 048
     Dates: start: 20250609
  3. ERBITUX [Suspect]
     Active Substance: CETUXIMAB

REACTIONS (5)
  - Renal impairment [Not Recovered/Not Resolved]
  - Dehydration [Unknown]
  - Hypotension [Unknown]
  - Fatigue [Unknown]
  - Product prescribing issue [Unknown]

NARRATIVE: CASE EVENT DATE: 20250501
